FAERS Safety Report 5234076-9 (Version None)
Quarter: 2007Q1

REPORT INFORMATION
  Report Type: 
  Country: None (occurrence: None)
  Receive Date: 20070208
  Receipt Date: 20070129
  Transmission Date: 20070707
  Serious: Yes (Other)
  Sender: FDA-Public Use
  Company Number: AU-PFIZER INC-2007007817

PATIENT
  Age: 58 Year
  Sex: Female

DRUGS (2)
  1. LIPITOR [Suspect]
     Indication: DRUG USE FOR UNKNOWN INDICATION
     Route: 048
  2. RULIDE [Interacting]
     Indication: PHARYNGITIS
     Route: 065

REACTIONS (7)
  - ARTHRALGIA [None]
  - DRUG INTERACTION [None]
  - HAEMORRHAGE SUBCUTANEOUS [None]
  - HYPERTENSION [None]
  - NAUSEA [None]
  - PHARYNGITIS [None]
  - VERTIGO [None]
